FAERS Safety Report 6261764-8 (Version None)
Quarter: 2009Q3

REPORT INFORMATION
  Report Type: 
  Country: None (occurrence: None)
  Receive Date: 20090707
  Receipt Date: 20090707
  Transmission Date: 20100115
  Serious: Yes (Hospitalization)
  Sender: FDA-Public Use
  Company Number: None

PATIENT
  Age: 75 Year
  Sex: Female
  Weight: 59.4212 kg

DRUGS (1)
  1. VYTORIN [Suspect]
     Indication: HYPERCHOLESTEROLAEMIA
     Dosage: 1 TAB AT HS PO
     Route: 048
     Dates: start: 20090704, end: 20090704

REACTIONS (4)
  - DIARRHOEA [None]
  - GALLBLADDER OPERATION [None]
  - NAUSEA [None]
  - VOMITING [None]
